FAERS Safety Report 9929215 (Version 1)
Quarter: 2014Q1

REPORT INFORMATION
  Report Type: Spontaneous
  Country: GB (occurrence: GB)
  Receive Date: 20140227
  Receipt Date: 20140227
  Transmission Date: 20141002
  Serious: Yes (Other)
  Sender: FDA-Public Use
  Company Number: GB-TEVA-464931ISR

PATIENT
  Age: 82 Year
  Sex: Male
  Weight: 74 kg

DRUGS (4)
  1. SIMVASTATIN [Suspect]
     Indication: DYSLIPIDAEMIA
     Route: 048
     Dates: start: 20110314, end: 20140205
  2. ALLOPURINOL [Concomitant]
  3. ASPIRIN [Concomitant]
  4. PERINDOPRIL [Concomitant]

REACTIONS (5)
  - Hepatitis [Recovering/Resolving]
  - Myalgia [Unknown]
  - Lethargy [Unknown]
  - Asthenia [Unknown]
  - Weight decreased [Unknown]
